FAERS Safety Report 13656147 (Version 1)
Quarter: 2017Q2

REPORT INFORMATION
  Report Type: Spontaneous
  Country: US (occurrence: US)
  Receive Date: 20170615
  Receipt Date: 20170615
  Transmission Date: 20170830
  Serious: Yes (Other)
  Sender: FDA-Public Use
  Company Number: US-ASTELLAS-2017US023176

PATIENT

DRUGS (1)
  1. LEXISCAN [Suspect]
     Active Substance: REGADENOSON
     Indication: CARDIAC STRESS TEST
     Dosage: 0.4 MG, UNKNOWN FREQ.
     Route: 042

REACTIONS (5)
  - Bradycardia [Unknown]
  - Unresponsive to stimuli [Recovered/Resolved]
  - Presyncope [Unknown]
  - Hypotension [Unknown]
  - Pulse abnormal [Unknown]
